FAERS Safety Report 5809352-9 (Version None)
Quarter: 2008Q3

REPORT INFORMATION
  Report Type: 
  Country: None (occurrence: None)
  Receive Date: 20080714
  Receipt Date: 20080702
  Transmission Date: 20090109
  Serious: Yes (Other)
  Sender: FDA-Public Use
  Company Number: PHHY2008JP13078

PATIENT
  Age: 66 Year
  Sex: Male

DRUGS (6)
  1. DIOVAN [Suspect]
     Indication: HYPERTENSION
     Dosage: UNK
     Route: 048
     Dates: start: 20071015, end: 20080101
  2. ATELEC [Concomitant]
     Route: 048
  3. MAINTATE [Concomitant]
     Route: 048
  4. PAMILCON [Concomitant]
  5. VOGLIBOSE [Concomitant]
  6. METFORMIN HYDROCHLORIDE [Concomitant]

REACTIONS (1)
  - PURPURA [None]
